FAERS Safety Report 4580533-8 (Version None)
Quarter: 2005Q1

REPORT INFORMATION
  Report Type: 
  Country: None (occurrence: None)
  Receive Date: 20050214
  Receipt Date: 20040217
  Transmission Date: 20050727
  Serious: Yes (Other)
  Sender: FDA-Public Use
  Company Number: 9681138-2004-00002

PATIENT
  Age: 47 Year
  Sex: Female

DRUGS (6)
  1. LAMICTAL [Suspect]
     Route: 048
  2. TOPROL-XL [Suspect]
  3. CLARINEX [Concomitant]
     Indication: SEASONAL ALLERGY
  4. AMBIEN [Concomitant]
     Indication: SLEEP DISORDER
  5. BIAXIN [Concomitant]
  6. SUPER POLIGRIP EXTRA CARE WITH POLISEAL [Concomitant]
     Dates: start: 20031201, end: 20040217

REACTIONS (4)
  - CONVULSION [None]
  - GINGIVAL SWELLING [None]
  - LYMPHADENOPATHY [None]
  - SWELLING FACE [None]
